FAERS Safety Report 8166344-5 (Version None)
Quarter: 2012Q1

REPORT INFORMATION
  Report Type: 
  Country: None (occurrence: None)
  Receive Date: 20120227
  Receipt Date: 20110725
  Transmission Date: 20120608
  Serious: Yes (Other)
  Sender: FDA-Public Use
  Company Number: US-MYLANLABS-2011S1012683

PATIENT
  Age: 21 Year
  Sex: Female
  Weight: 92.99 kg

DRUGS (4)
  1. AMNESTEEM [Suspect]
     Indication: ACNE
     Dates: end: 20110504
  2. CETAPHIL /00498501/ [Concomitant]
     Dosage: USE ON FACE AND BODY
     Route: 061
  3. CLARAVIS [Suspect]
  4. AMNESTEEM [Suspect]
     Indication: HIDRADENITIS
     Dates: end: 20110504

REACTIONS (3)
  - MENTAL DISORDER [None]
  - ANXIETY [None]
  - DEPRESSION [None]
